FAERS Safety Report 13712804 (Version 1)
Quarter: 2017Q3

REPORT INFORMATION
  Report Type: Spontaneous
  Country: FR (occurrence: FR)
  Receive Date: 20170703
  Receipt Date: 20170703
  Transmission Date: 20171127
  Serious: Yes (Congenital Anomaly)
  Sender: FDA-Public Use
  Company Number: FR-MERCK KGAA-2022863

PATIENT
  Sex: Female

DRUGS (10)
  1. ABILIFY [Suspect]
     Active Substance: ARIPIPRAZOLE
  2. UVEDOSE [Suspect]
     Active Substance: CHOLECALCIFEROL
  3. TERALITHE [Suspect]
     Active Substance: LITHIUM CARBONATE
     Dates: start: 20101215
  4. TRUVADA [Suspect]
     Active Substance: EMTRICITABINE\TENOFOVIR DISOPROXIL FUMARATE
     Dates: start: 20100925
  5. FUNGIZONE [Suspect]
     Active Substance: AMPHOTERICIN B
     Route: 048
     Dates: start: 20110505, end: 20110603
  6. PREZISTA [Suspect]
     Active Substance: DARUNAVIR ETHANOLATE
     Dates: start: 20100925
  7. NOVOTHYROX [Suspect]
     Active Substance: LEVOTHYROXINE SODIUM
     Indication: PRODUCT USED FOR UNKNOWN INDICATION
  8. TARDYFERON [Suspect]
     Active Substance: FERROUS SULFATE
     Dates: start: 20110505, end: 20110604
  9. RETROVIR [Concomitant]
     Active Substance: ZIDOVUDINE
  10. NORVIR [Suspect]
     Active Substance: RITONAVIR
     Dates: start: 20100925

REACTIONS (2)
  - Foetal exposure during pregnancy [Recovered/Resolved]
  - Foetal malnutrition [Recovered/Resolved]
